FAERS Safety Report 7262008-0 (Version None)
Quarter: 2011Q1

REPORT INFORMATION
  Report Type: 
  Country: None (occurrence: None)
  Receive Date: 20110120
  Receipt Date: 20110104
  Transmission Date: 20110831
  Serious: No
  Sender: FDA-Public Use
  Company Number: 023267

PATIENT
  Sex: Male
  Weight: 9.3 kg

DRUGS (2)
  1. KEPPRA [Suspect]
     Indication: EPILEPSY
     Dosage: (1000 MG TRANSPLACENTAL)
     Route: 064
     Dates: start: 20090101
  2. VITAMIN B12 + FOLIC ACID [Concomitant]

REACTIONS (3)
  - OPERATIVE HAEMORRHAGE [None]
  - DRUG EXPOSURE DURING PREGNANCY [None]
  - PENILE HAEMORRHAGE [None]
